FAERS Safety Report 19275351 (Version 2)
Quarter: 2022Q2

REPORT INFORMATION
  Report Type: Other
  Country: US (occurrence: None)
  Receive Date: 20210519
  Receipt Date: 20220428
  Transmission Date: 20220720
  Serious: Yes (Hospitalization, Other)
  Sender: FDA-Public Use
  Company Number: US-ROCHE-2830725

PATIENT
  Sex: Male

DRUGS (1)
  1. OCREVUS [Suspect]
     Active Substance: OCRELIZUMAB
     Indication: Multiple sclerosis
     Dosage: DOT: 07/JUL/2020, 600 MG IV EVERY 24 WEEKS
     Route: 042
     Dates: start: 2018

REACTIONS (3)
  - COVID-19 [Recovered/Resolved]
  - Muscle disorder [Not Recovered/Not Resolved]
  - Pneumonia [Recovered/Resolved]

NARRATIVE: CASE EVENT DATE: 20200101
